FAERS Safety Report 25419552 (Version 1)
Quarter: 2025Q2

REPORT INFORMATION
  Report Type: Spontaneous
  Country: GB (occurrence: GB)
  Receive Date: 20250610
  Receipt Date: 20250610
  Transmission Date: 20250717
  Serious: Yes (Other)
  Sender: NOVO NORDISK
  Company Number: GB-MHRA-MED-202308080125594150-ZYMTC

PATIENT

DRUGS (1)
  1. SAXENDA [Suspect]
     Active Substance: LIRAGLUTIDE
     Indication: Overweight
     Dates: start: 20230401, end: 20230802

REACTIONS (7)
  - Suicidal ideation [Recovering/Resolving]
  - Depression suicidal [Recovering/Resolving]
  - Depression [Recovering/Resolving]
  - Depression [Not Recovered/Not Resolved]
  - Mood swings [Recovered/Resolved with Sequelae]
  - Anxiety [Not Recovered/Not Resolved]
  - Crying [Not Recovered/Not Resolved]

NARRATIVE: CASE EVENT DATE: 20230401
